FAERS Safety Report 15909304 (Version 1)
Quarter: 2019Q1

REPORT INFORMATION
  Report Type: Spontaneous
  Country: US (occurrence: US)
  Receive Date: 20190204
  Receipt Date: 20190204
  Transmission Date: 20190417
  Serious: No
  Sender: FDA-Public Use
  Company Number: US-ABBVIE-18K-163-2279953-00

PATIENT
  Sex: Female

DRUGS (2)
  1. HUMIRA [Suspect]
     Active Substance: ADALIMUMAB
     Route: 058
  2. HUMIRA [Suspect]
     Active Substance: ADALIMUMAB
     Indication: HIDRADENITIS
     Dosage: LOADING DOSE
     Route: 058

REACTIONS (6)
  - Fear of injection [Unknown]
  - Myalgia [Recovered/Resolved]
  - Chills [Recovered/Resolved]
  - Injection site pain [Unknown]
  - Malaise [Unknown]
  - Myalgia [Unknown]

NARRATIVE: CASE EVENT DATE: 20180302
